FAERS Safety Report 4462761-5 (Version None)
Quarter: 2004Q3

REPORT INFORMATION
  Report Type: 
  Country: None (occurrence: None)
  Receive Date: 20040927
  Receipt Date: 20040915
  Transmission Date: 20050211
  Serious: Yes (Life-Threatening, Hospitalization)
  Sender: FDA-Public Use
  Company Number: A017385

PATIENT
  Age: 49 Year
  Sex: Male
  Weight: 86.1834 kg

DRUGS (10)
  1. ZITHROMAX [Suspect]
     Indication: UPPER RESPIRATORY TRACT INFECTION
     Dosage: 250 MG (DAILY), ORAL
     Route: 048
     Dates: start: 20000316, end: 20000320
  2. ACYCLOVIR [Suspect]
     Indication: VIRAL INFECTION
     Dosage: INTRAVENOUS
     Route: 042
     Dates: start: 20000301, end: 20000401
  3. VALDECOXIB [Suspect]
     Indication: PAIN
     Dosage: 10 MG (10 MG, 1 IN 1 D), ORAL
     Route: 048
     Dates: start: 20040101, end: 20040101
  4. AXOTAL (OLD FORM) (BUTALBITAL, CAFFEINE, PARACETAMOL) [Concomitant]
  5. METOPROLOL TARTRATE [Concomitant]
  6. FLUVASTATIN [Concomitant]
  7. ALPRAZOLAM [Concomitant]
  8. NAPROXEN SODIUM [Concomitant]
  9. PARACETAMOL [Concomitant]
  10. ACETYLSALCYLIC ACID [Concomitant]

REACTIONS (7)
  - DRUG INEFFECTIVE [None]
  - FALL [None]
  - HYPOAESTHESIA [None]
  - MYELITIS TRANSVERSE [None]
  - NAUSEA [None]
  - SENSORY LOSS [None]
  - VIRAL INFECTION [None]
